FAERS Safety Report 8225038-8 (Version None)
Quarter: 2012Q1

REPORT INFORMATION
  Report Type: 
  Country: None (occurrence: None)
  Receive Date: 20120321
  Receipt Date: 20120316
  Transmission Date: 20120608
  Serious: Yes (Hospitalization)
  Sender: FDA-Public Use
  Company Number: US-BAYER-2011-015286

PATIENT
  Age: 27 Year
  Sex: Female
  Weight: 70.748 kg

DRUGS (3)
  1. IBUPROFEN [Concomitant]
     Dosage: UNK
     Dates: start: 20090301
  2. YASMIN [Suspect]
     Indication: CONTRACEPTION
     Dosage: UNK
     Dates: start: 20070101, end: 20090601
  3. DROSPIRENONE AND ETHINYL ESTRADIOL [Suspect]
     Indication: CONTRACEPTION
     Dosage: UNK
     Dates: start: 20070101, end: 20090601

REACTIONS (2)
  - CHOLECYSTITIS [None]
  - PAIN [None]
